FAERS Safety Report 10041007 (Version 1)
Quarter: 2014Q1

REPORT INFORMATION
  Report Type: Spontaneous
  Country: US (occurrence: None)
  Receive Date: 20140326
  Receipt Date: 20140326
  Transmission Date: 20141002
  Serious: Yes (Other)
  Sender: FDA-Public Use
  Company Number: None

PATIENT
  Age: 21 Year
  Sex: Female
  Weight: 74 kg

DRUGS (2)
  1. CYTARABINE [Suspect]
     Dosage: ALSO GIVEN 79 MG IT OF ARAC ON 12/5/13 BUT SYSTEM WON^T ALLOW ARAC TO BE ENTERED TWICE.
     Dates: end: 20131214
  2. ETOPOSIDE (VP-16) [Suspect]
     Dates: end: 20131213

REACTIONS (8)
  - Staphylococcal bacteraemia [None]
  - Clostridium difficile colitis [None]
  - Pancytopenia [None]
  - Pyrexia [None]
  - Hypotension [None]
  - Blood count abnormal [None]
  - Device related infection [None]
  - Septic shock [None]
